FAERS Safety Report 25377863 (Version 2)
Quarter: 2025Q2

REPORT INFORMATION
  Report Type: Spontaneous
  Country: JP (occurrence: JP)
  Receive Date: 20250530
  Receipt Date: 20250627
  Transmission Date: 20250716
  Serious: Yes (Other)
  Sender: JOHNSON AND JOHNSON
  Company Number: JP-MTPC-MTPC2025-0009690

PATIENT
  Age: 21 Year
  Sex: Male

DRUGS (1)
  1. REMICADE [Suspect]
     Active Substance: INFLIXIMAB
     Indication: Enterocolitis
     Route: 041

REACTIONS (4)
  - Organising pneumonia [Unknown]
  - Mycobacterium avium complex infection [Recovering/Resolving]
  - Disseminated mycobacterium avium complex infection [Unknown]
  - Off label use [Unknown]
